FAERS Safety Report 5850247-2 (Version None)
Quarter: 2008Q3

REPORT INFORMATION
  Report Type: 
  Country: None (occurrence: None)
  Receive Date: 20080819
  Receipt Date: 20080812
  Transmission Date: 20090109
  Serious: Yes (Other)
  Sender: FDA-Public Use
  Company Number: PHEH2008US07087

PATIENT
  Sex: Female

DRUGS (3)
  1. EXJADE [Suspect]
     Dosage: UNK, ONCE A DAY AT 5PM
  2. EXJADE [Suspect]
     Dosage: UNK
     Dates: start: 20080809
  3. BLOOD TRANSFUSION, AUXILIARY PRODUCTS [Concomitant]

REACTIONS (2)
  - ANTIBODY TEST POSITIVE [None]
  - SURGERY [None]
